FAERS Safety Report 15601634 (Version 2)
Quarter: 2018Q4

REPORT INFORMATION
  Report Type: Spontaneous
  Country: RU (occurrence: RU)
  Receive Date: 20181109
  Receipt Date: 20181222
  Transmission Date: 20190205
  Serious: Yes (Other)
  Sender: FDA-Public Use
  Company Number: RU-BAYER-2018-203997

PATIENT
  Age: 45 Year
  Sex: Female
  Weight: 76 kg

DRUGS (3)
  1. MIRENA [Suspect]
     Active Substance: LEVONORGESTREL
     Indication: UTERINE LEIOMYOMA
     Dosage: 20 MCG/24HR, CONT
     Route: 015
     Dates: start: 201806, end: 20181110
  2. QLAIRA [Suspect]
     Active Substance: DIENOGEST\ESTRADIOL VALERATE
     Indication: OVARIAN CYST
     Dosage: UNK
     Route: 048
     Dates: start: 20181006, end: 201810
  3. MIRENA [Suspect]
     Active Substance: LEVONORGESTREL

REACTIONS (19)
  - Uterine leiomyoma [Recovered/Resolved]
  - Fibrin D dimer increased [Recovered/Resolved]
  - Withdrawal bleed [Recovered/Resolved]
  - Device expulsion [Recovered/Resolved]
  - Cough [Not Recovered/Not Resolved]
  - Asthma [Not Recovered/Not Resolved]
  - Weight increased [Recovered/Resolved]
  - Dyspnoea [Recovered/Resolved]
  - Dizziness [Recovered/Resolved]
  - Heart rate increased [Recovered/Resolved]
  - Off label use of device [None]
  - Respiratory tract infection viral [Not Recovered/Not Resolved]
  - Hypoxia [Recovered/Resolved]
  - Product use in unapproved indication [None]
  - Acid base balance abnormal [Recovered/Resolved]
  - Haemoglobin decreased [Recovered/Resolved]
  - Ovarian cyst [Recovered/Resolved]
  - Increased appetite [Recovered/Resolved]
  - Off label use [None]

NARRATIVE: CASE EVENT DATE: 201808
